FAERS Safety Report 5530690-1 (Version None)
Quarter: 2007Q4

REPORT INFORMATION
  Report Type: 
  Country: None (occurrence: None)
  Receive Date: 20071130
  Receipt Date: 20071121
  Transmission Date: 20080405
  Serious: Yes (Hospitalization)
  Sender: FDA-Public Use
  Company Number: FR-JNJFOC-20070700910

PATIENT
  Age: 64 Year
  Sex: Female

DRUGS (5)
  1. TAVANIC [Suspect]
     Indication: DRUG USE FOR UNKNOWN INDICATION
     Route: 048
  2. LANSOPRAZOLE [Concomitant]
     Route: 065
  3. SINGULAIR [Concomitant]
     Route: 065
  4. MEPRONIZINE [Concomitant]
     Route: 065
  5. FORADIL [Concomitant]
     Route: 065

REACTIONS (3)
  - COSTOVERTEBRAL ANGLE TENDERNESS [None]
  - NEUTROPENIA [None]
  - SYNCOPE VASOVAGAL [None]
